FAERS Safety Report 5162764-1 (Version None)
Quarter: 2006Q4

REPORT INFORMATION
  Report Type: 
  Country: None (occurrence: None)
  Receive Date: 20061121
  Receipt Date: 20061113
  Transmission Date: 20070319
  Serious: Yes (Death)
  Sender: FDA-Public Use
  Company Number: GXKR2006US07305

PATIENT
  Age: 5 Year
  Sex: Male

DRUGS (4)
  1. CLOZAPINE [Suspect]
     Dosage: 3 TABLETS, ORAL
     Route: 048
  2. THIORIDAZINE HCL [Suspect]
     Dosage: 1 TABLET, ORAL
     Route: 048
  3. SERTRALINE [Suspect]
  4. HYDROCODONE BITARTRATE + ACETAMINOPHEN [Concomitant]

REACTIONS (8)
  - ANOXIC ENCEPHALOPATHY [None]
  - ASPIRATION [None]
  - CONVULSION [None]
  - HYPOGLYCAEMIA [None]
  - LOSS OF CONSCIOUSNESS [None]
  - TACHYCARDIA [None]
  - THERAPY NON-RESPONDER [None]
  - VOMITING [None]
